FAERS Safety Report 20336434 (Version 1)
Quarter: 2022Q1

REPORT INFORMATION
  Report Type: Spontaneous
  Country: FR (occurrence: FR)
  Receive Date: 20220114
  Receipt Date: 20220114
  Transmission Date: 20220424
  Serious: Yes (Hospitalization)
  Sender: FDA-Public Use
  Company Number: FR-AMERICAN REGENT INC-2020002687

PATIENT
  Age: 44 Year
  Sex: Female
  Weight: 56 kg

DRUGS (3)
  1. FERINJECT [Suspect]
     Active Substance: FERRIC CARBOXYMALTOSE
     Indication: Iron deficiency anaemia
     Dosage: 1000 MG
     Dates: start: 20170822, end: 20200116
  2. FERINJECT [Suspect]
     Active Substance: FERRIC CARBOXYMALTOSE
     Indication: Iron deficiency anaemia
     Dosage: 5.5 GRAM (RECEIVED IN 6 INFUSIONS)
  3. FERINJECT [Suspect]
     Active Substance: FERRIC CARBOXYMALTOSE
     Dosage: 500 MILLIGRAM, SINGLE (7 DAYS AFTER FIRST DOSE)

REACTIONS (3)
  - Fibroblast growth factor 23 increased [Recovered/Resolved]
  - Hypophosphataemia [Recovered/Resolved]
  - Osteomalacia [Unknown]

NARRATIVE: CASE EVENT DATE: 20170919
